FAERS Safety Report 8639466 (Version 3)
Quarter: 2012Q4

REPORT INFORMATION
  Report Type: 
  Country: US (occurrence: US)
  Receive Date: 20120627
  Receipt Date: 20121205
  Transmission Date: 20130627
  Serious: Yes (Death)
  Sender: FDA-Public Use
  Company Number: US-CELGENEUS-163-21880-12063438

PATIENT
  Age: 65 Year
  Sex: Female

DRUGS (3)
  1. REVLIMID [Suspect]
     Indication: MULTIPLE MYELOMA
     Dosage: 25 Milligram
     Route: 048
     Dates: start: 20110527, end: 20120525
  2. DECADRON [Concomitant]
     Indication: MULTIPLE MYELOMA
     Dosage: 8 Milligram
     Route: 048
     Dates: start: 20110526, end: 20120305
  3. COUMADIN [Concomitant]
     Indication: MULTIPLE MYELOMA
     Dosage: 2 Milligram
     Route: 048
     Dates: start: 20110616, end: 20120615

REACTIONS (2)
  - Respiratory failure [Fatal]
  - Plasma cell myeloma [Fatal]
